FAERS Safety Report 19277548 (Version 2)
Quarter: 2021Q2

REPORT INFORMATION
  Report Type: Spontaneous
  Country: FR (occurrence: FR)
  Receive Date: 20210520
  Receipt Date: 20210608
  Transmission Date: 20210717
  Serious: Yes (Hospitalization)
  Sender: FDA-Public Use
  Company Number: FR-TEVA-2021-FR-1912658

PATIENT
  Age: 24 Year
  Sex: Male

DRUGS (5)
  1. CHLORHYDRATE DE LIDOCAINE [Suspect]
     Active Substance: LIDOCAINE HYDROCHLORIDE
     Route: 045
  2. PARACETAMOL [Suspect]
     Active Substance: ACETAMINOPHEN
     Route: 065
  3. ZOPICLONE [Suspect]
     Active Substance: ZOPICLONE
     Route: 048
  4. CHLORHYDRATE DE TRAMADOL [Suspect]
     Active Substance: TRAMADOL HYDROCHLORIDE
     Route: 045
  5. MIDAZOLAM. [Suspect]
     Active Substance: MIDAZOLAM
     Route: 045

REACTIONS (6)
  - Poisoning [Recovered/Resolved]
  - Miosis [Recovered/Resolved]
  - Coma [Recovered/Resolved]
  - Arrhythmia [Recovered/Resolved]
  - Cardiogenic shock [Recovered/Resolved]
  - Polyuria [Recovered/Resolved]
